FAERS Safety Report 19689699 (Version 3)
Quarter: 2022Q3

REPORT INFORMATION
  Report Type: Report from Study
  Country: US (occurrence: US)
  Receive Date: 20210812
  Receipt Date: 20220826
  Transmission Date: 20221027
  Serious: Yes (Other)
  Sender: FDA-Public Use
  Company Number: US-ABBVIE-21K-163-4033033-00

PATIENT
  Sex: Female

DRUGS (6)
  1. IMBRUVICA [Suspect]
     Active Substance: IBRUTINIB
     Indication: Waldenstrom^s macroglobulinaemia
     Route: 048
     Dates: start: 20210212
  2. IMBRUVICA [Suspect]
     Active Substance: IBRUTINIB
     Route: 048
  3. IMBRUVICA [Suspect]
     Active Substance: IBRUTINIB
     Route: 048
  4. MODERNA COVID-19 VACCINE [Concomitant]
     Active Substance: ELASOMERAN
     Indication: COVID-19 immunisation
     Dosage: FIRST DOSE
     Route: 030
  5. MODERNA COVID-19 VACCINE [Concomitant]
     Active Substance: ELASOMERAN
     Dosage: SECOND DOSE
     Route: 030
  6. MODERNA COVID-19 VACCINE [Concomitant]
     Active Substance: ELASOMERAN
     Dosage: BOOSTER DOSE
     Route: 030

REACTIONS (19)
  - Myocardial infarction [Unknown]
  - Deafness [Unknown]
  - Balance disorder [Unknown]
  - Cerebrovascular accident [Unknown]
  - Rib fracture [Unknown]
  - Osteopenia [Unknown]
  - Arthritis [Unknown]
  - Vertigo [Unknown]
  - Mastoiditis [Unknown]
  - Initial insomnia [Unknown]
  - Blood potassium increased [Unknown]
  - Blood creatinine abnormal [Unknown]
  - Tendon pain [Unknown]
  - Renal disorder [Recovered/Resolved]
  - Fall [Unknown]
  - Asthenia [Unknown]
  - Myalgia [Unknown]
  - Viral infection [Unknown]
  - Fatigue [Unknown]

NARRATIVE: CASE EVENT DATE: 20210101
